FAERS Safety Report 14913839 (Version 4)
Quarter: 2022Q3

REPORT INFORMATION
  Report Type: Spontaneous
  Country: US (occurrence: US)
  Receive Date: 20180518
  Receipt Date: 20220909
  Transmission Date: 20221027
  Serious: Yes (Other)
  Sender: FDA-Public Use
  Company Number: US-PFIZER INC-2018199309

PATIENT
  Age: 75 Year
  Sex: Female

DRUGS (1)
  1. XELJANZ XR [Suspect]
     Active Substance: TOFACITINIB CITRATE
     Dosage: 11 MG

REACTIONS (6)
  - Back disorder [Unknown]
  - Musculoskeletal disorder [Unknown]
  - Product dispensing error [Unknown]
  - Malaise [Unknown]
  - Arthropathy [Unknown]
  - Memory impairment [Unknown]
